FAERS Safety Report 14966336 (Version 2)
Quarter: 2018Q2

REPORT INFORMATION
  Report Type: Report from Study
  Country: DE (occurrence: DE)
  Receive Date: 20180604
  Receipt Date: 20180614
  Transmission Date: 20180711
  Serious: Yes (Other)
  Sender: FDA-Public Use
  Company Number: DE-BRISTOL-MYERS SQUIBB COMPANY-BMS-2018-035092

PATIENT
  Age: 67 Year
  Sex: Male

DRUGS (10)
  1. RIVAROXABAN [Concomitant]
     Active Substance: RIVAROXABAN
     Indication: CEREBROVASCULAR DISORDER
     Dosage: UNK
     Route: 065
  2. FLUDROCORTISONE [Concomitant]
     Active Substance: FLUDROCORTISONE
     Indication: MALIGNANT NEOPLASM PROGRESSION
     Dosage: UNK
     Route: 065
  3. CATIONORM [Concomitant]
     Active Substance: CETALKONIUM\GLYCERIN\MINERAL OIL\POLOXAMER 188\TROMETHAMINE\TYLOXAPOL
     Indication: PRODUCT USED FOR UNKNOWN INDICATION
     Dosage: UNK
     Route: 065
     Dates: start: 20180125, end: 20180208
  4. NIVOLUMAB [Suspect]
     Active Substance: NIVOLUMAB
     Indication: RENAL CELL CARCINOMA
     Dosage: 3 MG/KG, Q2WK(LAST DOSE 25-JAN-2018)
     Route: 042
     Dates: start: 20170516
  5. NOVORAPID [Concomitant]
     Active Substance: INSULIN ASPART
     Indication: METABOLIC DISORDER
     Route: 065
  6. LEVOTHYROXIN [Concomitant]
     Active Substance: LEVOTHYROXINE
     Indication: METABOLIC DISORDER
     Dosage: 175 ?G, UNK
     Route: 065
  7. HYDROCORTISON                      /00028601/ [Concomitant]
     Active Substance: HYDROCORTISONE
     Indication: MALIGNANT NEOPLASM PROGRESSION
     Dosage: UNK
     Route: 065
  8. RAMIPRIL. [Concomitant]
     Active Substance: RAMIPRIL
     Indication: CEREBROVASCULAR DISORDER
     Dosage: 1 DF, UNK
     Route: 065
  9. INSULIN GLARGINE [Concomitant]
     Active Substance: INSULIN GLARGINE
     Indication: METABOLIC DISORDER
     Route: 065
  10. SILDENAFIL. [Concomitant]
     Active Substance: SILDENAFIL
     Indication: PRODUCT USED FOR UNKNOWN INDICATION
     Dosage: 100 MG, UNK
     Route: 065
     Dates: start: 20171108

REACTIONS (7)
  - Blepharitis [Recovered/Resolved]
  - Face injury [Recovered/Resolved]
  - Intervertebral disc protrusion [Recovered/Resolved]
  - Dizziness [Recovered/Resolved]
  - Dry skin [Recovered/Resolved]
  - Sunburn [Recovered/Resolved]
  - Traumatic fracture [Recovered/Resolved]

NARRATIVE: CASE EVENT DATE: 20170601
